FAERS Safety Report 6920642-9 (Version None)
Quarter: 2010Q3

REPORT INFORMATION
  Report Type: 
  Country: None (occurrence: None)
  Receive Date: 20100812
  Receipt Date: 20100810
  Transmission Date: 20110219
  Serious: Yes (Hospitalization)
  Sender: FDA-Public Use
  Company Number: JP-BAYER-200912410BYL

PATIENT
  Age: 64 Year
  Sex: Male
  Weight: 58 kg

DRUGS (12)
  1. NEXAVAR [Suspect]
     Indication: HEPATIC NEOPLASM MALIGNANT
     Dosage: TOTAL DAILY DOSE: 800 MG  UNIT DOSE: 200 MG
     Route: 048
     Dates: start: 20090626, end: 20090708
  2. NEXAVAR [Suspect]
     Dosage: UNIT DOSE: 200 MG
     Route: 048
     Dates: start: 20090721, end: 20091204
  3. NEXAVAR [Suspect]
     Dosage: UNIT DOSE: 200 MG
     Route: 048
     Dates: start: 20090714, end: 20090720
  4. PROMAC [Concomitant]
     Dosage: TOTAL DAILY DOSE: 150 MG  UNIT DOSE: 75 MG
     Route: 048
  5. LORFENAMIN [Concomitant]
     Dosage: TOTAL DAILY DOSE: 180 MG  UNIT DOSE: 60 MG
     Route: 048
  6. TAKEPRON [Concomitant]
     Dosage: TOTAL DAILY DOSE: 15 MG  UNIT DOSE: 15 MG
     Route: 048
  7. OXYCONTIN [Concomitant]
     Dosage: TOTAL DAILY DOSE: 10 MG  UNIT DOSE: 5 MG
     Route: 048
  8. MAGLAX [Concomitant]
     Indication: PROPHYLAXIS
     Dosage: TOTAL DAILY DOSE: 750 MG  UNIT DOSE: 250 MG
     Route: 048
  9. PRIMPERAN TAB [Concomitant]
     Indication: NAUSEA
     Dosage: BEFORE NEXAVAR ADMINISTRATION
     Route: 048
  10. LENDORMIN [Concomitant]
     Dosage: SINCE BEFORE ADMINISTRATION
     Route: 048
  11. URSO 250 [Concomitant]
     Dosage: SINCE BEFORE ADMINISTRATION
     Route: 048
  12. UREPEARL [Concomitant]
     Route: 061
     Dates: start: 20090729

REACTIONS (10)
  - ALOPECIA [None]
  - DECREASED APPETITE [None]
  - DIARRHOEA [None]
  - ERYTHEMA MULTIFORME [None]
  - FATIGUE [None]
  - HYPERAMYLASAEMIA [None]
  - LIVER DISORDER [None]
  - NAUSEA [None]
  - PALMAR-PLANTAR ERYTHRODYSAESTHESIA SYNDROME [None]
  - VOMITING [None]
